FAERS Safety Report 23615256 (Version 1)
Quarter: 2024Q1

REPORT INFORMATION
  Report Type: Report from Study
  Country: GB (occurrence: GB)
  Receive Date: 20240311
  Receipt Date: 20240311
  Transmission Date: 20240410
  Serious: Yes (Hospitalization, Other)
  Sender: FDA-Public Use
  Company Number: GB-002147023-NVSC2024GB047346

PATIENT
  Sex: Female

DRUGS (1)
  1. AIMOVIG [Suspect]
     Active Substance: ERENUMAB-AOOE
     Indication: Migraine
     Dosage: 140 MG, Q4W
     Route: 058
     Dates: start: 2020

REACTIONS (3)
  - Lung neoplasm malignant [Unknown]
  - Brain neoplasm [Unknown]
  - Product dose omission issue [Unknown]
